FAERS Safety Report 25989656 (Version 1)
Quarter: 2025Q4

REPORT INFORMATION
  Report Type: Spontaneous
  Country: CH (occurrence: CH)
  Receive Date: 20251103
  Receipt Date: 20251103
  Transmission Date: 20260118
  Serious: Yes (Other)
  Sender: ACCORD
  Company Number: CH-MLMSERVICE-20251016-PI678107-00082-1

PATIENT
  Age: 66 Year
  Sex: Female

DRUGS (8)
  1. CARBOPLATIN [Suspect]
     Active Substance: CARBOPLATIN
     Indication: Squamous cell carcinoma of the cervix
     Dosage: RECEIVED SEVEN CYCLES
  2. PACLITAXEL [Suspect]
     Active Substance: PACLITAXEL
     Indication: Squamous cell carcinoma of the cervix
     Dosage: RECEIVED SEVEN CYCLES
  3. PACLITAXEL [Suspect]
     Active Substance: PACLITAXEL
     Indication: Metastases to pleura
     Dosage: RECEIVED SEVEN CYCLES
  4. CARBOPLATIN [Suspect]
     Active Substance: CARBOPLATIN
     Indication: Metastases to peritoneum
     Dosage: RECEIVED SEVEN CYCLES
  5. CARBOPLATIN [Suspect]
     Active Substance: CARBOPLATIN
     Indication: Cervix carcinoma
     Dosage: RECEIVED SEVEN CYCLES
  6. PACLITAXEL [Suspect]
     Active Substance: PACLITAXEL
     Indication: Cervix carcinoma
     Dosage: RECEIVED SEVEN CYCLES
  7. PACLITAXEL [Suspect]
     Active Substance: PACLITAXEL
     Indication: Metastases to peritoneum
     Dosage: RECEIVED SEVEN CYCLES
  8. CARBOPLATIN [Suspect]
     Active Substance: CARBOPLATIN
     Indication: Metastases to pleura
     Dosage: RECEIVED SEVEN CYCLES

REACTIONS (2)
  - Pancytopenia [Unknown]
  - Off label use [Unknown]
